FAERS Safety Report 5257053-0 (Version None)
Quarter: 2007Q1

REPORT INFORMATION
  Report Type: 
  Country: None (occurrence: None)
  Receive Date: 20070302
  Receipt Date: 20070216
  Transmission Date: 20070707
  Serious: No
  Sender: FDA-Public Use
  Company Number: 1022556-2007-00040

PATIENT

DRUGS (1)
  1. UNISOM [Suspect]
     Indication: SLEEP DISORDER THERAPY
     Dosage: 6 TABS, ORAL
     Route: 048
     Dates: start: 20070216

REACTIONS (1)
  - LOSS OF CONSCIOUSNESS [None]
